FAERS Safety Report 7703368-3 (Version None)
Quarter: 2011Q3

REPORT INFORMATION
  Report Type: 
  Country: None (occurrence: None)
  Receive Date: 20110817
  Receipt Date: 20110810
  Transmission Date: 20111222
  Serious: Yes (Death, Life-Threatening, Hospitalization)
  Sender: FDA-Public Use
  Company Number: WAES 1105FRA00102

PATIENT
  Age: 52 Year
  Sex: Male

DRUGS (13)
  1. TENOFOVIR DISOPROXIL FUMARATE [Suspect]
     Indication: HIV INFECTION
     Dosage: 300 MG, DAILY, PO
     Route: 048
     Dates: start: 20110502, end: 20110808
  2. CLARITHROMYCIN [Concomitant]
  3. PYRAZINAMIDE [Concomitant]
  4. PYRIDOXINE HCL [Concomitant]
  5. AMIKACIN [Concomitant]
  6. RIFAMPIN [Concomitant]
  7. BACTRIM [Concomitant]
  8. LEVOFLOXACIN [Concomitant]
  9. TERIZIDONE [Concomitant]
  10. ISONIAZID [Concomitant]
  11. TAB RALTEGRAVIR POTASSIUM [Suspect]
     Indication: HIV INFECTION
     Dosage: 800 MG/BID, PO
     Route: 048
     Dates: start: 20110502, end: 20110808
  12. LAMIVUDINE [Suspect]
     Indication: HIV INFECTION
     Dosage: 300 MG, DAILY, PO
     Route: 048
     Dates: start: 20110502, end: 20110808
  13. ETHAMBUTOL HYDROCHLORIDE [Concomitant]

REACTIONS (8)
  - NERVOUS SYSTEM DISORDER [None]
  - CONFUSIONAL STATE [None]
  - SOMNOLENCE [None]
  - ATYPICAL MYCOBACTERIAL INFECTION [None]
  - DEEP VEIN THROMBOSIS [None]
  - BRADYPHRENIA [None]
  - PYREXIA [None]
  - MENINGITIS TUBERCULOUS [None]
